FAERS Safety Report 9875761 (Version 2)
Quarter: 2016Q1

REPORT INFORMATION
  Report Type: Other
  Country: US (occurrence: US)
  Receive Date: 20140206
  Receipt Date: 20160229
  Transmission Date: 20160526
  Serious: No
  Sender: FDA-Public Use
  Company Number: US-ACORDA-ACO_37325_2013

PATIENT
  Age: 66 Year
  Sex: Female
  Weight: 45.35 kg

DRUGS (1)
  1. AMPYRA [Suspect]
     Active Substance: DALFAMPRIDINE
     Indication: GAIT DISTURBANCE
     Dosage: 10 MG, Q 12 HRS
     Route: 048

REACTIONS (7)
  - Back injury [Unknown]
  - No adverse event [Unknown]
  - Back pain [Recovering/Resolving]
  - Medication error [Unknown]
  - Gait disturbance [Not Recovered/Not Resolved]
  - Inappropriate schedule of drug administration [Unknown]
  - Fall [Unknown]

NARRATIVE: CASE EVENT DATE: 20130711
